FAERS Safety Report 7618258-4 (Version None)
Quarter: 2011Q3

REPORT INFORMATION
  Report Type: 
  Country: None (occurrence: None)
  Receive Date: 20110718
  Receipt Date: 20110707
  Transmission Date: 20111222
  Serious: Yes (Hospitalization)
  Sender: FDA-Public Use
  Company Number: ZA-VIIV HEALTHCARE LIMITED-B0733441A

PATIENT
  Age: 31 Year
  Sex: Female

DRUGS (5)
  1. LAMIVUDINE + ZIDOVUDINE [Suspect]
     Indication: HIV INFECTION
     Dosage: 450MG TWICE PER DAY
     Route: 048
     Dates: start: 20110606
  2. FERROUS SULFATE TAB [Concomitant]
  3. AMOXICILLIN [Concomitant]
     Indication: BACTERIURIA
  4. LOPINAVIR/RITONAVIR [Suspect]
     Indication: HIV INFECTION
     Dosage: 250MG TWICE PER DAY
     Route: 048
     Dates: start: 20110606
  5. FOLIC ACID [Concomitant]

REACTIONS (1)
  - INTRA-UTERINE DEATH [None]
